FAERS Safety Report 20883320 (Version 1)
Quarter: 2022Q2

REPORT INFORMATION
  Report Type: Spontaneous
  Country: PL (occurrence: PL)
  Receive Date: 20220527
  Receipt Date: 20220527
  Transmission Date: 20220721
  Serious: Yes (Other)
  Sender: FDA-Public Use
  Company Number: PL-MYLANLABS-2022M1039359

PATIENT
  Age: 36 Year
  Sex: Male

DRUGS (9)
  1. FLUOROURACIL [Suspect]
     Active Substance: FLUOROURACIL
     Indication: Pancreatic carcinoma metastatic
     Dosage: UNK,FOLFIRINOX SCHEME
     Route: 065
     Dates: start: 20190830
  2. FLUOROURACIL [Suspect]
     Active Substance: FLUOROURACIL
     Dosage: UNK,FOLFIRI REGIMEN
     Route: 065
     Dates: start: 20200515
  3. LEUCOVORIN [Suspect]
     Active Substance: LEUCOVORIN
     Indication: Pancreatic carcinoma metastatic
     Dosage: UNK,FOLFIRINOX SCHEME
     Route: 065
     Dates: start: 20190830
  4. LEUCOVORIN [Suspect]
     Active Substance: LEUCOVORIN
     Dosage: UNK,FOLFIRI REGIMEN
     Route: 065
     Dates: start: 20200515
  5. IRINOTECAN [Suspect]
     Active Substance: IRINOTECAN
     Indication: Pancreatic carcinoma metastatic
     Dosage: UNK,FOLFIRINOX SCHEME
     Route: 065
     Dates: start: 20190830
  6. IRINOTECAN [Suspect]
     Active Substance: IRINOTECAN
     Dosage: UNK,FOLFIRI REGIMEN
     Route: 065
     Dates: start: 20200515
  7. OXALIPLATIN [Suspect]
     Active Substance: OXALIPLATIN
     Indication: Pancreatic carcinoma metastatic
     Dosage: UNK,FOLFIRINOX SCHEME
     Route: 065
     Dates: start: 20190830
  8. CISPLATIN [Suspect]
     Active Substance: CISPLATIN
     Indication: Pancreatic carcinoma metastatic
     Dosage: UNK,PG REGIMEN FOR 4 MONTHS
     Route: 065
     Dates: start: 2019
  9. GEMCITABINE [Suspect]
     Active Substance: GEMCITABINE
     Indication: Pancreatic carcinoma metastatic
     Dosage: UNK,PG REGIMEN FOR 4 MONTHS
     Route: 065
     Dates: start: 2019

REACTIONS (3)
  - Drug ineffective [Unknown]
  - Diarrhoea [Unknown]
  - Asthenia [Unknown]

NARRATIVE: CASE EVENT DATE: 20190101
